FAERS Safety Report 10407477 (Version 2)
Quarter: 2014Q4

REPORT INFORMATION
  Report Type: Spontaneous
  Country: IT (occurrence: IT)
  Receive Date: 20140825
  Receipt Date: 20141024
  Transmission Date: 20150528
  Serious: Yes (Hospitalization)
  Sender: FDA-Public Use
  Company Number: PHHY2014IT103584

PATIENT
  Age: 70 Year
  Sex: Female

DRUGS (6)
  1. DAFLON (DIOSMIN) [Concomitant]
     Active Substance: DIOSMIN
  2. AFINITOR [Suspect]
     Active Substance: EVEROLIMUS
     Indication: PANCREATIC NEUROENDOCRINE TUMOUR METASTATIC
     Dosage: 10 MG, DAILY
     Route: 048
     Dates: start: 20131221, end: 20140723
  3. AFINITOR [Suspect]
     Active Substance: EVEROLIMUS
     Dosage: 5 MG, UNK
     Route: 048
     Dates: start: 20140219, end: 20140723
  4. MESALAZINE [Concomitant]
     Active Substance: MESALAMINE
     Indication: ANAL FISSURE
  5. KCL RETARD [Concomitant]
     Active Substance: POTASSIUM CHLORIDE
  6. MAG 2 [Concomitant]
     Active Substance: MAGNESIUM CHLORIDE

REACTIONS (1)
  - Vasculitis [Recovering/Resolving]

NARRATIVE: CASE EVENT DATE: 20140219
